FAERS Safety Report 21918287 (Version 2)
Quarter: 2023Q1

REPORT INFORMATION
  Report Type: Report from Study
  Country: CA (occurrence: CA)
  Receive Date: 20230127
  Receipt Date: 20230203
  Transmission Date: 20230417
  Serious: Yes (Other)
  Sender: FDA-Public Use
  Company Number: CA-ABBVIE-4282739

PATIENT
  Sex: Female

DRUGS (1)
  1. RINVOQ [Suspect]
     Active Substance: UPADACITINIB
     Indication: Rheumatoid arthritis
     Route: 048
     Dates: start: 20210401, end: 20221215

REACTIONS (7)
  - Neoplasm malignant [Unknown]
  - Fall [Unknown]
  - Malaise [Unknown]
  - Renal injury [Unknown]
  - Traumatic lung injury [Unknown]
  - Dyspnoea [Unknown]
  - Cough [Unknown]
